FAERS Safety Report 20542652 (Version 1)
Quarter: 2022Q1

REPORT INFORMATION
  Report Type: Spontaneous
  Country: JP (occurrence: None)
  Receive Date: 20220302
  Receipt Date: 20220302
  Transmission Date: 20220423
  Serious: Yes (Other)
  Sender: FDA-Public Use
  Company Number: 2022A088598

PATIENT
  Age: 70 Year
  Sex: Female

DRUGS (3)
  1. NEXIUM [Suspect]
     Active Substance: ESOMEPRAZOLE MAGNESIUM
     Dosage: DOSE UNKNOWN
     Route: 048
  2. LORNOXICAM [Suspect]
     Active Substance: LORNOXICAM
     Indication: Arthralgia
     Dosage: DOSE UNKNOWN
     Route: 048
  3. PREDNISOLONE [Concomitant]
     Active Substance: PREDNISOLONE
     Indication: Felty^s syndrome
     Dosage: DOSE UNKNOWN
     Route: 048

REACTIONS (2)
  - Gastric ulcer [Unknown]
  - Prepyloric stenosis [Unknown]
